FAERS Safety Report 4436869-4 (Version None)
Quarter: 2004Q3

REPORT INFORMATION
  Report Type: 
  Country: None (occurrence: None)
  Receive Date: 20040830
  Receipt Date: 20040820
  Transmission Date: 20050211
  Serious: Yes (Hospitalization, Other)
  Sender: FDA-Public Use
  Company Number: PHNU2004DE02945

PATIENT
  Age: 83 Year
  Sex: Male

DRUGS (2)
  1. ZOMETA [Suspect]
     Indication: METASTASES TO BONE
     Dosage: 4 MG, ONCE/SINGLE
     Route: 042
     Dates: start: 20040801, end: 20040801
  2. CASODEX [Concomitant]
     Indication: PROSTATE CANCER
     Dosage: UNK, UNK
     Route: 048

REACTIONS (2)
  - CHEST PAIN [None]
  - CIRCULATORY COLLAPSE [None]
